FAERS Safety Report 4815117-7 (Version None)
Quarter: 2005Q4

REPORT INFORMATION
  Report Type: 
  Country: None (occurrence: None)
  Receive Date: 20051027
  Receipt Date: 20051013
  Transmission Date: 20060501
  Serious: Yes (Other)
  Sender: FDA-Public Use
  Company Number: 2005144707

PATIENT
  Sex: Male
  Weight: 91.6266 kg

DRUGS (6)
  1. VIAGRA [Suspect]
     Indication: ERECTILE DYSFUNCTION
     Dosage: ABOUT 6 YEARS AGO
  2. LYRICA [Suspect]
     Indication: POLYNEUROPATHY
     Dosage: 150 MG (50 MG, 1 IN 3 D)
     Dates: start: 20051006
  3. GLUCOTROL [Concomitant]
  4. ZESTRIL [Concomitant]
  5. CENTRUM (MINERALS NOS, VITAMINS NOS) [Concomitant]
  6. CAPITROL (HALQUINOL) [Concomitant]

REACTIONS (19)
  - AMNESIA [None]
  - BALANCE DISORDER [None]
  - CATARACT [None]
  - CONDITION AGGRAVATED [None]
  - CONSTIPATION [None]
  - COORDINATION ABNORMAL [None]
  - DIFFICULTY IN WALKING [None]
  - DRUG INEFFECTIVE [None]
  - ECZEMA [None]
  - ERECTILE DYSFUNCTION [None]
  - GAIT DISTURBANCE [None]
  - GLAUCOMA [None]
  - HYPOAESTHESIA [None]
  - IMPAIRED DRIVING ABILITY [None]
  - KNEE OPERATION [None]
  - LIBIDO DECREASED [None]
  - SENSORY DISTURBANCE [None]
  - TREATMENT NONCOMPLIANCE [None]
  - VISUAL ACUITY REDUCED [None]
